FAERS Safety Report 18454251 (Version 1)
Quarter: 2020Q4

REPORT INFORMATION
  Report Type: Other
  Country: US (occurrence: US)
  Receive Date: 20201102
  Receipt Date: 20201102
  Transmission Date: 20210114
  Serious: Yes (Other)
  Sender: FDA-Public Use
  Company Number: US-ROCHE-2698493

PATIENT
  Age: 42 Year
  Sex: Female
  Weight: 63.56 kg

DRUGS (27)
  1. SUMATRIPTAN SUCCINATE. [Concomitant]
     Active Substance: SUMATRIPTAN SUCCINATE
     Indication: MIGRAINE
     Dosage: TAKE ONE AT ONSET OF MIGRAINE
     Route: 048
  2. VERAPAMIL HCL [Concomitant]
     Active Substance: VERAPAMIL HYDROCHLORIDE
     Route: 048
  3. VITAMIN B12 [Concomitant]
     Active Substance: CYANOCOBALAMIN
     Indication: VITAMIN B12 DECREASED
     Route: 060
     Dates: start: 2011
  4. BOTOX [Suspect]
     Active Substance: ONABOTULINUMTOXINA
     Indication: PRODUCT USED FOR UNKNOWN INDICATION
     Route: 065
  5. ACIDOPHILUS [Concomitant]
     Active Substance: LACTOBACILLUS ACIDOPHILUS
     Indication: URINARY TRACT INFECTION
     Route: 048
     Dates: start: 2020
  6. FOLIC ACID. [Concomitant]
     Active Substance: FOLIC ACID
     Indication: FATIGUE
     Route: 048
     Dates: start: 2018
  7. BACTRIM [Concomitant]
     Active Substance: SULFAMETHOXAZOLE\TRIMETHOPRIM
     Route: 048
  8. MIRENA [Concomitant]
     Active Substance: LEVONORGESTREL
  9. CRANBERRY + VITAMIN C [Concomitant]
     Indication: URINARY TRACT INFECTION
     Route: 048
     Dates: start: 2020
  10. ATORVASTATIN [Concomitant]
     Active Substance: ATORVASTATIN
     Indication: BLOOD CHOLESTEROL INCREASED
     Route: 048
     Dates: start: 2020
  11. CLONAZEPAM. [Concomitant]
     Active Substance: CLONAZEPAM
     Dosage: AS NEEDED
     Route: 048
  12. OCREVUS [Suspect]
     Active Substance: OCRELIZUMAB
     Indication: RELAPSING-REMITTING MULTIPLE SCLEROSIS
     Route: 042
     Dates: start: 201703
  13. PRISTIQ EXTENDED-RELEASE [Concomitant]
     Active Substance: DESVENLAFAXINE SUCCINATE
     Indication: DEPRESSION
     Route: 048
     Dates: start: 202001
  14. SOLU-MEDROL [Concomitant]
     Active Substance: METHYLPREDNISOLONE SODIUM SUCCINATE
     Dosage: ADMINISTER 30 MINS PRIOR TO INFUSION
     Route: 042
  15. CYANOCOBALAMIN. [Concomitant]
     Active Substance: CYANOCOBALAMIN
  16. LISINOPRIL HCTZ [Concomitant]
     Active Substance: HYDROCHLOROTHIAZIDE\LISINOPRIL
  17. VITAMIN D3 [Concomitant]
     Active Substance: CHOLECALCIFEROL
     Route: 048
     Dates: start: 2020
  18. SALMON OIL [Concomitant]
     Active Substance: FISH OIL
     Route: 048
     Dates: start: 2011
  19. TOPIRAMATE. [Concomitant]
     Active Substance: TOPIRAMATE
     Indication: MIGRAINE
     Route: 048
  20. BACLOFEN. [Concomitant]
     Active Substance: BACLOFEN
     Route: 048
  21. UBRELVY [Concomitant]
     Active Substance: UBROGEPANT
     Indication: MIGRAINE
     Route: 048
     Dates: start: 2020
  22. TYLENOL [Concomitant]
     Active Substance: ACETAMINOPHEN
     Dosage: ADMINISTER 650 MG PRIOR TO INFUSION
     Route: 048
  23. MAGNESIUM [Concomitant]
     Active Substance: MAGNESIUM
     Indication: MIGRAINE
     Route: 048
     Dates: start: 2020
  24. NP THYROID [Concomitant]
     Active Substance: LEVOTHYROXINE\LIOTHYRONINE
     Route: 048
     Dates: start: 20200821
  25. BENADRYL [Concomitant]
     Active Substance: DIPHENHYDRAMINE HYDROCHLORIDE
     Route: 048
  26. CHOLECALCIFEROL [Concomitant]
     Active Substance: CHOLECALCIFEROL
  27. DESVENLAFAXINE SUCCINATE. [Concomitant]
     Active Substance: DESVENLAFAXINE SUCCINATE
     Route: 048

REACTIONS (18)
  - Intentional product use issue [Unknown]
  - Pollakiuria [Unknown]
  - Constipation [Unknown]
  - Optic neuritis [Unknown]
  - Thyroid disorder [Not Recovered/Not Resolved]
  - Pruritus [Unknown]
  - Blood cholesterol increased [Not Recovered/Not Resolved]
  - Candida infection [Unknown]
  - Dizziness [Unknown]
  - Insomnia [Unknown]
  - Ataxia [Unknown]
  - Back pain [Unknown]
  - Oropharyngeal pain [Not Recovered/Not Resolved]
  - Vitamin D decreased [Not Recovered/Not Resolved]
  - Headache [Unknown]
  - Urinary tract infection [Not Recovered/Not Resolved]
  - Off label use [Unknown]
  - Cognitive disorder [Unknown]

NARRATIVE: CASE EVENT DATE: 20190821
